FAERS Safety Report 7233186-4 (Version None)
Quarter: 2011Q1

REPORT INFORMATION
  Report Type: 
  Country: None (occurrence: None)
  Receive Date: 20110119
  Receipt Date: 20110114
  Transmission Date: 20110831
  Serious: Yes (Death, Hospitalization)
  Sender: FDA-Public Use
  Company Number: A0875764A

PATIENT
  Age: 79 Year
  Sex: Female

DRUGS (4)
  1. EFFEXOR XR [Concomitant]
     Dosage: 37.5MG PER DAY
  2. DIGOXIN [Concomitant]
     Dosage: .125MG PER DAY
  3. TYKERB [Suspect]
     Dosage: 500MG PER DAY
     Route: 048
     Dates: start: 20100510, end: 20100620
  4. LISINOPRIL [Concomitant]
     Dosage: 5MG PER DAY

REACTIONS (3)
  - MENTAL STATUS CHANGES [None]
  - NEOPLASM MALIGNANT [None]
  - METASTASES TO MENINGES [None]
